FAERS Safety Report 7896829-8 (Version None)
Quarter: 2011Q4

REPORT INFORMATION
  Report Type: 
  Country: None (occurrence: None)
  Receive Date: 20111107
  Receipt Date: 20111026
  Transmission Date: 20120403
  Serious: No
  Sender: FDA-Public Use
  Company Number: US-BIOGENIDEC-2011BI040708

PATIENT
  Sex: Female

DRUGS (1)
  1. AVONEX [Suspect]
     Indication: MULTIPLE SCLEROSIS
     Route: 030
     Dates: start: 20090520

REACTIONS (9)
  - INJECTION SITE INFECTION [None]
  - INJECTION SITE HAEMATOMA [None]
  - INFECTION [None]
  - PYREXIA [None]
  - ARTHRALGIA [None]
  - HYPOAESTHESIA [None]
  - EAR PAIN [None]
  - PAIN IN EXTREMITY [None]
  - GENERAL SYMPTOM [None]
